FAERS Safety Report 4418142-3 (Version None)
Quarter: 2004Q3

REPORT INFORMATION
  Report Type: 
  Country: None (occurrence: None)
  Receive Date: 20040805
  Receipt Date: 20040805
  Transmission Date: 20050211
  Serious: Yes (Hospitalization)
  Sender: FDA-Public Use
  Company Number: None

PATIENT
  Age: 27 Year
  Sex: Female
  Weight: 64.2 kg

DRUGS (3)
  1. INTERFERON [Suspect]
     Indication: MALIGNANT MELANOMA
     Dosage: 18 MU, QD, SQ
     Dates: start: 20010516, end: 20010520
  2. COUMADIN [Concomitant]
  3. DECADRON [Concomitant]

REACTIONS (2)
  - METASTASES TO CENTRAL NERVOUS SYSTEM [None]
  - VISION BLURRED [None]
